FAERS Safety Report 4367862-8 (Version None)
Quarter: 2004Q2

REPORT INFORMATION
  Report Type: 
  Country: None (occurrence: None)
  Receive Date: 20040601
  Receipt Date: 20040601
  Transmission Date: 20050107
  Serious: Yes (Life-Threatening)
  Sender: FDA-Public Use
  Company Number: None

PATIENT
  Age: 47 Year
  Sex: Female
  Weight: 82.4639 kg

DRUGS (23)
  1. MYLOTARG [Suspect]
     Indication: ACUTE MYELOID LEUKAEMIA
     Dosage: 11 MG IV 7 MG INTRAVENOUS IV
     Route: 042
     Dates: start: 20040507, end: 20040515
  2. MYLOTARG [Suspect]
     Indication: DISEASE RECURRENCE
     Dosage: 11 MG IV 7 MG INTRAVENOUS IV
     Route: 042
     Dates: start: 20040507, end: 20040515
  3. CYTARABINE [Suspect]
     Indication: ACUTE MYELOID LEUKAEMIA
     Dosage: 370 MG IV CONTINUOUS IV
     Route: 042
     Dates: start: 20040508, end: 20040515
  4. CYTARABINE [Suspect]
     Indication: DISEASE RECURRENCE
     Dosage: 370 MG IV CONTINUOUS IV
     Route: 042
     Dates: start: 20040508, end: 20040515
  5. ZOVIRAX [Concomitant]
  6. DIFLUCAN [Concomitant]
  7. ALBUTEROL [Concomitant]
  8. LEVAQUIN [Concomitant]
  9. AYGESTIN [Concomitant]
  10. TYLENOL [Concomitant]
  11. BENADRYL [Concomitant]
  12. HYDROCORTISONE [Concomitant]
  13. ZOFRAN [Concomitant]
  14. REGLAN [Concomitant]
  15. TRAZODONE HCL [Concomitant]
  16. PROTONIX [Concomitant]
  17. RESTORIL [Concomitant]
  18. DILAUDID [Concomitant]
  19. LOPRESSOR [Concomitant]
  20. DECADRON [Concomitant]
  21. SENOKOT [Concomitant]
  22. ALDACTONE [Concomitant]
  23. BENADRYL [Concomitant]

REACTIONS (3)
  - COMA [None]
  - HAEMORRHAGE INTRACRANIAL [None]
  - TRANSAMINASES INCREASED [None]
